FAERS Safety Report 9024658 (Version 2)
Quarter: 2013Q4

REPORT INFORMATION
  Report Type: Spontaneous
  Country: DK (occurrence: DK)
  Receive Date: 20130120
  Receipt Date: 20131008
  Transmission Date: 20140711
  Serious: Yes (Hospitalization)
  Sender: FDA-Public Use
  Company Number: PHHY2013DK003447

PATIENT
  Age: 73 Year
  Sex: Male
  Weight: 70 kg

DRUGS (10)
  1. GABAPENTIN SANDOZ [Suspect]
     Indication: PHANTOM PAIN
     Dosage: 300 MG, TID
     Route: 048
     Dates: start: 20121225, end: 20130107
  2. QUININE [Concomitant]
     Indication: MUSCLE SPASMS
  3. PINEX [Concomitant]
  4. CORODIL [Concomitant]
  5. SELOZOK [Concomitant]
  6. SIMVASTATIN [Concomitant]
  7. JERN C [Concomitant]
  8. NOVORAPID [Concomitant]
  9. NOVOMIX 30 FLEXPEN [Concomitant]
  10. OXYCONTIN [Concomitant]

REACTIONS (3)
  - Hypokinesia [Not Recovered/Not Resolved]
  - Alanine aminotransferase increased [Not Recovered/Not Resolved]
  - Blood lactate dehydrogenase increased [Not Recovered/Not Resolved]
